FAERS Safety Report 8537193-0 (Version None)
Quarter: 2012Q3

REPORT INFORMATION
  Report Type: 
  Country: None (occurrence: None)
  Receive Date: 20120725
  Receipt Date: 20120716
  Transmission Date: 20120928
  Serious: Yes (Hospitalization)
  Sender: FDA-Public Use
  Company Number: CA-ASTRAZENECA-2012SE40274

PATIENT
  Age: 73 Year
  Sex: Female

DRUGS (7)
  1. DICLOFENAC [Concomitant]
     Route: 048
     Dates: end: 20120101
  2. METOPROLOL SUCCINATE [Concomitant]
     Route: 048
  3. SIMVASTATIN [Concomitant]
     Indication: BLOOD CHOLESTEROL ABNORMAL
     Route: 048
  4. PLENDIL [Suspect]
     Route: 048
  5. METOPROLOL SUCCINATE [Concomitant]
     Route: 048
  6. METOPROLOL SUCCINATE [Concomitant]
     Route: 048
  7. EZETIMIBE [Concomitant]
     Route: 048
     Dates: end: 20120101

REACTIONS (3)
  - POST PROCEDURAL DISCOMFORT [None]
  - ANGINA PECTORIS [None]
  - FATIGUE [None]
